FAERS Safety Report 26145246 (Version 1)
Quarter: 2025Q4

REPORT INFORMATION
  Report Type: Spontaneous
  Country: GB (occurrence: GB)
  Receive Date: 20251211
  Receipt Date: 20251211
  Transmission Date: 20260118
  Serious: Yes (Other)
  Sender: TEVA
  Company Number: None

PATIENT
  Age: 22 Year
  Sex: Female

DRUGS (6)
  1. PROMETHAZINE [Suspect]
     Active Substance: PROMETHAZINE HYDROCHLORIDE
     Indication: Poor quality sleep
     Dosage: DAILY DOSAGE: 25MG A NIGHT
     Route: 065
  2. DEXTROMETHORPHAN [Suspect]
     Active Substance: DEXTROMETHORPHAN
     Indication: Product used for unknown indication
     Dosage: DAILY DOSAGE: 25MG ONCE A NIGHT
     Route: 065
  3. ACETAMINOPHEN [Suspect]
     Active Substance: ACETAMINOPHEN
     Indication: Poor quality sleep
     Dosage: DAILY DOSAGE: 25MG ONCE A NIGHT
     Route: 065
  4. PHOLCODINE [Suspect]
     Active Substance: PHOLCODINE
     Indication: Product used for unknown indication
     Dosage: DAILY DOSAGE: 25MG ONCE A NIGHT
     Route: 065
  5. DESOGESTREL [Concomitant]
     Active Substance: DESOGESTREL
     Indication: Contraception
  6. PSEUDOEPHEDRINE [Suspect]
     Active Substance: PSEUDOEPHEDRINE
     Indication: Poor quality sleep
     Dosage: DAILY DOSAGE: 25MG ONCE A NIGHT
     Route: 065

REACTIONS (1)
  - Menstruation delayed [Not Recovered/Not Resolved]
